FAERS Safety Report 25978927 (Version 1)
Quarter: 2025Q4

REPORT INFORMATION
  Report Type: Spontaneous
  Country: EU (occurrence: EU)
  Receive Date: 20251030
  Receipt Date: 20251030
  Transmission Date: 20260119
  Serious: Yes (Hospitalization)
  Sender: MYLAN
  Company Number: None

PATIENT
  Age: 33 Year
  Sex: Female
  Weight: 61 kg

DRUGS (20)
  1. ALPRAZOLAM [Suspect]
     Active Substance: ALPRAZOLAM
     Indication: Product used for unknown indication
     Dosage: 60 MILLIGRAM, TOTAL
     Dates: start: 20250921, end: 20250921
  2. ALPRAZOLAM [Suspect]
     Active Substance: ALPRAZOLAM
     Dosage: 60 MILLIGRAM, TOTAL
     Route: 048
     Dates: start: 20250921, end: 20250921
  3. ALPRAZOLAM [Suspect]
     Active Substance: ALPRAZOLAM
     Dosage: 60 MILLIGRAM, TOTAL
     Route: 048
     Dates: start: 20250921, end: 20250921
  4. ALPRAZOLAM [Suspect]
     Active Substance: ALPRAZOLAM
     Dosage: 60 MILLIGRAM, TOTAL
     Dates: start: 20250921, end: 20250921
  5. FLUOXETINE [Suspect]
     Active Substance: FLUOXETINE HYDROCHLORIDE
     Indication: Product used for unknown indication
     Dosage: 2800 MILLIGRAM, TOTAL
     Dates: start: 20250921, end: 20250921
  6. FLUOXETINE [Suspect]
     Active Substance: FLUOXETINE HYDROCHLORIDE
     Dosage: 2800 MILLIGRAM, TOTAL
     Route: 048
     Dates: start: 20250921, end: 20250921
  7. FLUOXETINE [Suspect]
     Active Substance: FLUOXETINE HYDROCHLORIDE
     Dosage: 2800 MILLIGRAM, TOTAL
     Route: 048
     Dates: start: 20250921, end: 20250921
  8. FLUOXETINE [Suspect]
     Active Substance: FLUOXETINE HYDROCHLORIDE
     Dosage: 2800 MILLIGRAM, TOTAL
     Dates: start: 20250921, end: 20250921
  9. ZOPICLONE [Suspect]
     Active Substance: ZOPICLONE
     Indication: Product used for unknown indication
     Dosage: 210 MILLIGRAM, TOTAL
     Dates: start: 20250921, end: 20250921
  10. ZOPICLONE [Suspect]
     Active Substance: ZOPICLONE
     Dosage: 210 MILLIGRAM, TOTAL
     Route: 048
     Dates: start: 20250921, end: 20250921
  11. ZOPICLONE [Suspect]
     Active Substance: ZOPICLONE
     Dosage: 210 MILLIGRAM, TOTAL
     Route: 048
     Dates: start: 20250921, end: 20250921
  12. ZOPICLONE [Suspect]
     Active Substance: ZOPICLONE
     Dosage: 210 MILLIGRAM, TOTAL
     Dates: start: 20250921, end: 20250921
  13. RISPERIDONE [Suspect]
     Active Substance: RISPERIDONE
     Indication: Product used for unknown indication
     Dosage: 17 DOSAGE FORM, TOTAL
     Dates: start: 20250921, end: 20250921
  14. RISPERIDONE [Suspect]
     Active Substance: RISPERIDONE
     Dosage: 17 DOSAGE FORM, TOTAL
     Route: 048
     Dates: start: 20250921, end: 20250921
  15. RISPERIDONE [Suspect]
     Active Substance: RISPERIDONE
     Dosage: 17 DOSAGE FORM, TOTAL
     Route: 048
     Dates: start: 20250921, end: 20250921
  16. RISPERIDONE [Suspect]
     Active Substance: RISPERIDONE
     Dosage: 17 DOSAGE FORM, TOTAL
     Dates: start: 20250921, end: 20250921
  17. LOXAPINE [Suspect]
     Active Substance: LOXAPINE
     Indication: Product used for unknown indication
     Dosage: 3750 MILLIGRAM, TOTAL
     Dates: start: 20250921, end: 20250921
  18. LOXAPINE [Suspect]
     Active Substance: LOXAPINE
     Dosage: 3750 MILLIGRAM, TOTAL
     Route: 048
     Dates: start: 20250921, end: 20250921
  19. LOXAPINE [Suspect]
     Active Substance: LOXAPINE
     Dosage: 3750 MILLIGRAM, TOTAL
     Route: 048
     Dates: start: 20250921, end: 20250921
  20. LOXAPINE [Suspect]
     Active Substance: LOXAPINE
     Dosage: 3750 MILLIGRAM, TOTAL
     Dates: start: 20250921, end: 20250921

REACTIONS (2)
  - Altered state of consciousness [Recovered/Resolved]
  - Poisoning deliberate [Recovered/Resolved]

NARRATIVE: CASE EVENT DATE: 20250921
